FAERS Safety Report 8299263-4 (Version None)
Quarter: 2012Q2

REPORT INFORMATION
  Report Type: 
  Country: None (occurrence: None)
  Receive Date: 20120416
  Receipt Date: 20120416
  Transmission Date: 20120825
  Serious: No
  Sender: FDA-Public Use
  Company Number: None

PATIENT
  Age: 61 Year
  Sex: Female

DRUGS (1)
  1. ALLOPURINOL [Suspect]
     Dates: start: 20101020, end: 20110107

REACTIONS (10)
  - LIVER DISORDER [None]
  - RENAL FAILURE [None]
  - PYREXIA [None]
  - MULTI-ORGAN FAILURE [None]
  - CHOLESTASIS [None]
  - DRUG RASH WITH EOSINOPHILIA AND SYSTEMIC SYMPTOMS [None]
  - EOSINOPHILIA [None]
  - STEVENS-JOHNSON SYNDROME [None]
  - FATIGUE [None]
  - DRUG HYPERSENSITIVITY [None]
